FAERS Safety Report 4624900-2 (Version None)
Quarter: 2005Q2

REPORT INFORMATION
  Report Type: 
  Country: None (occurrence: None)
  Receive Date: 20050401
  Receipt Date: 20050324
  Transmission Date: 20051028
  Serious: Yes (Other)
  Sender: FDA-Public Use
  Company Number: US-JNJFOC-20050303927

PATIENT
  Age: 28 Year
  Sex: Female

DRUGS (9)
  1. DURAGESIC-100 [Suspect]
     Route: 062
     Dates: start: 20050303
  2. DURAGESIC-100 [Suspect]
     Route: 062
     Dates: start: 20050303
  3. BEXTRA [Concomitant]
     Indication: ANTIINFLAMMATORY THERAPY
     Route: 049
  4. OXYDOSE [Concomitant]
     Route: 049
  5. OXYDOSE [Concomitant]
     Indication: PAIN
     Route: 049
  6. METHADONE HCL [Concomitant]
     Route: 049
  7. DIAZEPAM [Concomitant]
     Route: 049
  8. NICOTINE [Concomitant]
     Indication: SMOKING CESSATION THERAPY
     Route: 062
  9. INDERAL [Concomitant]
     Indication: DRUG USE FOR UNKNOWN INDICATION

REACTIONS (3)
  - DRUG INTERACTION [None]
  - DRUG WITHDRAWAL SYNDROME [None]
  - GRAND MAL CONVULSION [None]
